FAERS Safety Report 8032044-5 (Version None)
Quarter: 2012Q1

REPORT INFORMATION
  Report Type: 
  Country: None (occurrence: None)
  Receive Date: 20120109
  Receipt Date: 20110628
  Transmission Date: 20120608
  Serious: No
  Sender: FDA-Public Use
  Company Number: US-ABBOTT-11P-163-0835939-00

PATIENT
  Sex: Female
  Weight: 60.382 kg

DRUGS (3)
  1. BUTRANS [Suspect]
     Indication: PAIN
     Dosage: PATCHES
     Dates: start: 20110428, end: 20110508
  2. ALPRAZOLAM [Concomitant]
     Indication: ANXIETY
  3. VICODIN [Suspect]
     Indication: PAIN
     Dates: start: 20070101

REACTIONS (2)
  - PRESYNCOPE [None]
  - DIZZINESS [None]
